FAERS Safety Report 6143353-9 (Version None)
Quarter: 2009Q2

REPORT INFORMATION
  Report Type: 
  Country: None (occurrence: None)
  Receive Date: 20090403
  Receipt Date: 20090401
  Transmission Date: 20091009
  Serious: Yes (Hospitalization)
  Sender: FDA-Public Use
  Company Number: D0060999A

PATIENT
  Sex: Female

DRUGS (6)
  1. MALARONE [Suspect]
     Indication: PROPHYLAXIS
     Route: 048
     Dates: start: 20081220, end: 20090108
  2. AMLODIPINE [Concomitant]
     Dosage: 2.5MG PER DAY
     Route: 065
  3. LISIBETA [Concomitant]
     Dosage: 10MG PER DAY
     Route: 065
  4. METOHEXAL [Concomitant]
     Dosage: 50MG PER DAY
     Route: 065
  5. DESMOPRESSIN ACETATE [Concomitant]
     Route: 065
  6. LEVOTHYROXINE SODIUM [Concomitant]
     Dosage: 50MCG PER DAY
     Route: 065

REACTIONS (11)
  - DIARRHOEA [None]
  - DISTURBANCE IN ATTENTION [None]
  - DYSSTASIA [None]
  - GAMMA-GLUTAMYLTRANSFERASE INCREASED [None]
  - HEPATIC STEATOSIS [None]
  - HYPONATRAEMIA [None]
  - MEMORY IMPAIRMENT [None]
  - MENTAL IMPAIRMENT [None]
  - MOBILITY DECREASED [None]
  - PANCREATITIS [None]
  - VOMITING [None]
